FAERS Safety Report 8121884-X (Version None)
Quarter: 2012Q1

REPORT INFORMATION
  Report Type: 
  Country: None (occurrence: None)
  Receive Date: 20120208
  Receipt Date: 20120207
  Transmission Date: 20120608
  Serious: Yes (Death)
  Sender: FDA-Public Use
  Company Number: IT-ROCHE-1037551

PATIENT

DRUGS (4)
  1. NORVASC [Concomitant]
  2. AVASTIN [Suspect]
     Indication: COLON CANCER
     Route: 042
     Dates: start: 20111102, end: 20120202
  3. VALPRESSION [Concomitant]
  4. FENTANYL-100 [Concomitant]
     Route: 062
     Dates: start: 20111201, end: 20120206

REACTIONS (1)
  - SUDDEN DEATH [None]
